FAERS Safety Report 26134157 (Version 1)
Quarter: 2025Q4

REPORT INFORMATION
  Report Type: Spontaneous
  Country: US (occurrence: US)
  Receive Date: 20251209
  Receipt Date: 20251209
  Transmission Date: 20260118
  Serious: No
  Sender: SOLENO THERAPEUTICS
  Company Number: US-SOLENO THERAPEUTICS, INC.-SOL2025000697

PATIENT
  Age: 14 Year
  Sex: Female
  Weight: 123.38 kg

DRUGS (3)
  1. VYKAT XR [Suspect]
     Active Substance: DIAZOXIDE CHOLINE
     Indication: Prader-Willi syndrome
     Dosage: 150 MILLIGRAM
     Route: 048
     Dates: start: 20250728, end: 2025
  2. VYKAT XR [Suspect]
     Active Substance: DIAZOXIDE CHOLINE
     Dosage: 450 MILLIGRAM, QD (6 TABLETS BY MOUTH ONCE DAILY)
     Route: 048
     Dates: start: 2025
  3. TRULICITY [Concomitant]
     Active Substance: DULAGLUTIDE
     Indication: Product used for unknown indication
     Dosage: UNK, QD
     Route: 065

REACTIONS (1)
  - Oedema peripheral [Recovering/Resolving]

NARRATIVE: CASE EVENT DATE: 20251009
